FAERS Safety Report 5574974-X (Version None)
Quarter: 2007Q4

REPORT INFORMATION
  Report Type: 
  Country: None (occurrence: None)
  Receive Date: 20071227
  Receipt Date: 20071220
  Transmission Date: 20080405
  Serious: Yes (Other)
  Sender: FDA-Public Use
  Company Number: B0500604A

PATIENT
  Age: 40 Year
  Sex: Female

DRUGS (6)
  1. PAXIL [Suspect]
     Indication: DEPRESSION
     Route: 048
     Dates: start: 20071204
  2. ANAFRANIL [Concomitant]
     Dosage: 150MG PER DAY
     Route: 048
     Dates: start: 20071126
  3. ANAFRANIL [Concomitant]
     Dosage: 25MG PER DAY
     Route: 042
     Dates: start: 20071126
  4. MYSLEE [Concomitant]
     Dosage: 5MG PER DAY
     Route: 048
  5. VEGETAMIN-B [Concomitant]
     Route: 048
     Dates: start: 20071126
  6. RITALIN [Concomitant]
     Route: 065
     Dates: end: 20071001

REACTIONS (4)
  - MUSCLE SPASMS [None]
  - MYOCLONUS [None]
  - SEROTONIN SYNDROME [None]
  - TREMOR [None]
